FAERS Safety Report 13962387 (Version 2)
Quarter: 2017Q3

REPORT INFORMATION
  Report Type: Report from Study
  Country: None (occurrence: NL)
  Receive Date: 20170913
  Receipt Date: 20170926
  Transmission Date: 20171128
  Serious: Yes (Hospitalization, Other)
  Sender: FDA-Public Use
  Company Number: NL-ABBVIE-17K-114-2072980-00

PATIENT
  Age: 76 Year
  Sex: Female

DRUGS (1)
  1. DUODOPA [Suspect]
     Active Substance: CARBIDOPA\LEVODOPA
     Indication: PARKINSON^S DISEASE
     Dosage: MORNING DOSE: 12.0 CONTINUOUS DOSE: 3.8 EXTRA DOSE: 4.0
     Route: 050
     Dates: start: 20160222

REACTIONS (6)
  - Musculoskeletal discomfort [Not Recovered/Not Resolved]
  - Cystitis noninfective [Recovered/Resolved]
  - Device issue [Recovered/Resolved]
  - Gait disturbance [Not Recovered/Not Resolved]
  - Osteoarthritis [Unknown]
  - General physical health deterioration [Not Recovered/Not Resolved]

NARRATIVE: CASE EVENT DATE: 20170907
